FAERS Safety Report 14272708 (Version 1)
Quarter: 2017Q4

REPORT INFORMATION
  Report Type: Spontaneous
  Country: US (occurrence: None)
  Receive Date: 20171212
  Receipt Date: 20171212
  Transmission Date: 20180321
  Serious: No
  Sender: FDA-Public Use
  Company Number: None

PATIENT
  Age: 69 Year
  Sex: Male
  Weight: 108 kg

DRUGS (2)
  1. CASODEX [Suspect]
     Active Substance: BICALUTAMIDE
     Dates: end: 20120103
  2. LEUPROLIDE ACETATE. [Suspect]
     Active Substance: LEUPROLIDE ACETATE
     Dates: end: 20110907

REACTIONS (7)
  - Urinary retention [None]
  - Bladder sphincter atony [None]
  - Erythema [None]
  - Cystitis radiation [None]
  - Urinary incontinence [None]
  - Condition aggravated [None]
  - Haematuria [None]

NARRATIVE: CASE EVENT DATE: 20170215
